FAERS Safety Report 20364272 (Version 1)
Quarter: 2022Q1

REPORT INFORMATION
  Report Type: Spontaneous
  Country: US (occurrence: None)
  Receive Date: 20220121
  Receipt Date: 20220121
  Transmission Date: 20220424
  Serious: No
  Sender: FDA-Public Use
  Company Number: None

PATIENT
  Age: 73 Year
  Sex: Male
  Weight: 93 kg

DRUGS (1)
  1. IODIXANOL [Suspect]
     Active Substance: IODIXANOL
     Indication: Computerised tomogram neck
     Dosage: 75 ML ONCE IV?
     Route: 042
     Dates: start: 20211102, end: 20211102

REACTIONS (4)
  - Cardio-respiratory arrest [None]
  - Anaphylactic reaction [None]
  - Pulseless electrical activity [None]
  - Acute respiratory distress syndrome [None]

NARRATIVE: CASE EVENT DATE: 20211102
